FAERS Safety Report 8848570 (Version 1)
Quarter: 2012Q4

REPORT INFORMATION
  Report Type: 
  Country: CH (occurrence: CH)
  Receive Date: 20121018
  Receipt Date: 20121018
  Transmission Date: 20130627
  Serious: Yes (Other)
  Sender: FDA-Public Use
  Company Number: CH-GLAXOSMITHKLINE-B0832867A

PATIENT
  Age: 13 Year
  Sex: Male

DRUGS (1)
  1. TROBALT [Suspect]
     Indication: CONGENITAL ANOMALY
     Dosage: 50MG Three times per day
     Route: 048

REACTIONS (3)
  - Convulsion [Unknown]
  - Fatigue [Unknown]
  - Off label use [Unknown]
